FAERS Safety Report 5851731-8 (Version None)
Quarter: 2008Q3

REPORT INFORMATION
  Report Type: 
  Country: None (occurrence: None)
  Receive Date: 20080820
  Receipt Date: 20080814
  Transmission Date: 20090109
  Serious: Yes (Other)
  Sender: FDA-Public Use
  Company Number: PHBS2008TN05445

PATIENT
  Sex: Female
  Weight: 2.7 kg

DRUGS (4)
  1. METOPROLOL [Suspect]
     Route: 064
  2. FUROSEMIDE [Suspect]
     Route: 064
  3. SALICYLIC ACID [Suspect]
     Route: 064
  4. CORTICOSTEROID NOS [Suspect]
     Route: 064

REACTIONS (2)
  - DRUG EXPOSURE DURING PREGNANCY [None]
  - PREMATURE BABY [None]
